FAERS Safety Report 17968607 (Version 1)
Quarter: 2020Q3

REPORT INFORMATION
  Report Type: Spontaneous
  Country: HR (occurrence: HR)
  Receive Date: 20200701
  Receipt Date: 20200701
  Transmission Date: 20201103
  Serious: Yes (Life-Threatening, Hospitalization)
  Sender: FDA-Public Use
  Company Number: HR-PFIZER INC-2020252193

PATIENT
  Age: 22 Year
  Sex: Female
  Weight: 65 kg

DRUGS (2)
  1. TASIGNA [Suspect]
     Active Substance: NILOTINIB
     Indication: CHRONIC MYELOID LEUKAEMIA
     Dosage: 200 MILLIGRAM, QD
     Route: 048
     Dates: start: 20181205
  2. CONTROLOC [Suspect]
     Active Substance: PANTOPRAZOLE SODIUM
     Indication: GASTRITIS
     Dosage: 40 MILLIGRAM, QD
     Route: 048
     Dates: start: 20191216

REACTIONS (10)
  - Hair texture abnormal [Not Recovered/Not Resolved]
  - Hypotrichosis [Not Recovered/Not Resolved]
  - Hair growth rate abnormal [Not Recovered/Not Resolved]
  - Fatigue [Recovering/Resolving]
  - Alopecia [Not Recovered/Not Resolved]
  - Gastritis [Recovering/Resolving]
  - Disturbance in attention [Recovering/Resolving]
  - Hair injury [Not Recovered/Not Resolved]
  - Vomiting [Unknown]
  - Somnolence [Recovering/Resolving]

NARRATIVE: CASE EVENT DATE: 2018
